FAERS Safety Report 6520996-1 (Version None)
Quarter: 2009Q4

REPORT INFORMATION
  Report Type: 
  Country: None (occurrence: None)
  Receive Date: 20091229
  Receipt Date: 20090608
  Transmission Date: 20100525
  Serious: Yes (Hospitalization)
  Sender: FDA-Public Use
  Company Number: ES-SANOFI-AVENTIS-F01200900026

PATIENT
  Age: 49 Year
  Sex: Male
  Weight: 42 kg

DRUGS (9)
  1. OXALIPLATIN [Suspect]
     Indication: GASTRIC CANCER
     Dosage: UNIT DOSE: 80 MG/M2
     Route: 041
     Dates: start: 20090102, end: 20090102
  2. DOCETAXEL [Suspect]
     Dosage: UNIT DOSE: 45 MG/M2
     Route: 042
     Dates: start: 20090102, end: 20090102
  3. CAPECITABINE [Suspect]
     Dosage: UNIT DOSE: 1400 MG/M2
     Route: 048
     Dates: start: 20080904, end: 20090107
  4. PARACETAMOL [Concomitant]
     Indication: PAIN
     Dosage: DOSE:1 GRAIN(S)
     Route: 048
     Dates: start: 20080901
  5. FENTANYL-100 [Concomitant]
     Indication: PAIN
     Dosage: UNIT DOSE: 50 MG
     Dates: start: 20080901
  6. METOCLOPRAMIDE [Concomitant]
     Indication: PROPHYLAXIS
     Route: 048
     Dates: start: 20080901
  7. OMEPRAZOLE [Concomitant]
     Indication: PROPHYLAXIS
     Route: 048
     Dates: start: 20080901
  8. IRON [Concomitant]
     Indication: PROPHYLAXIS
     Route: 048
     Dates: start: 20080101
  9. DEXAMETHASONE [Concomitant]
     Indication: PAIN
     Route: 048
     Dates: start: 20080910

REACTIONS (8)
  - ANAEMIA [None]
  - ASTHENIA [None]
  - EASTERN COOPERATIVE ONCOLOGY GROUP PERFORMANCE STATUS WORSENED [None]
  - GASTRIC CANCER [None]
  - MALIGNANT NEOPLASM PROGRESSION [None]
  - METASTASES TO PERITONEUM [None]
  - NEUTROPENIA [None]
  - THROMBOCYTOPENIA [None]
